FAERS Safety Report 6633072-4 (Version None)
Quarter: 2010Q1

REPORT INFORMATION
  Report Type: 
  Country: None (occurrence: None)
  Receive Date: 20100312
  Receipt Date: 20100301
  Transmission Date: 20100710
  Serious: Yes (Other)
  Sender: FDA-Public Use
  Company Number: PHHY2010US12043

PATIENT
  Age: 72 Year
  Sex: Female
  Weight: 79.819 kg

DRUGS (19)
  1. TEKTURNA [Suspect]
     Indication: HYPERTENSION
     Dosage: 150 MG, QD
     Route: 048
     Dates: start: 20100212, end: 20100212
  2. TOPROL-XL [Suspect]
     Dosage: 100 MG, TID
     Route: 065
  3. CLONIDINE [Suspect]
     Dosage: 0.1 MG, BID
     Route: 048
  4. SYNTHROID [Concomitant]
     Route: 065
  5. PULMICORT [Concomitant]
     Route: 065
  6. DUONEB [Concomitant]
     Route: 065
  7. PREMARIN [Concomitant]
     Route: 065
  8. FLOMAX [Concomitant]
     Route: 065
  9. LEXAPRO [Concomitant]
     Route: 065
  10. TRIMETHOPRIM [Concomitant]
     Route: 065
  11. OMEPRAZOLE [Concomitant]
     Route: 065
  12. IBUPROFEN [Concomitant]
     Route: 065
  13. FLEXERIL [Concomitant]
     Route: 065
  14. ULTRAM [Concomitant]
     Route: 065
  15. GABAPENTIN [Concomitant]
     Route: 065
  16. MIGRRELIEF [Concomitant]
     Route: 065
  17. VITAMIN D [Concomitant]
     Route: 065
  18. INDERAL [Concomitant]
     Route: 065
  19. IRON [Concomitant]
     Route: 065

REACTIONS (1)
  - DYSPNOEA [None]
